FAERS Safety Report 15952898 (Version 1)
Quarter: 2019Q1

REPORT INFORMATION
  Report Type: Spontaneous
  Country: CA (occurrence: CA)
  Receive Date: 20190212
  Receipt Date: 20190212
  Transmission Date: 20190417
  Serious: Yes (Other)
  Sender: FDA-Public Use
  Company Number: CA-TEVA-2019-CA-1011932

PATIENT
  Age: 61 Year
  Sex: Female

DRUGS (3)
  1. METHOTREXATE. [Suspect]
     Active Substance: METHOTREXATE
     Indication: PRODUCT USED FOR UNKNOWN INDICATION
     Route: 065
  2. ARAVA [Concomitant]
     Active Substance: LEFLUNOMIDE
  3. HYDROXYCHLOROQUINE /00072603/ [Concomitant]
     Active Substance: HYDROXYCHLOROQUINE SULFATE

REACTIONS (5)
  - Gastrointestinal disorder [Unknown]
  - Pulmonary mass [Unknown]
  - Contraindication to medical treatment [Unknown]
  - Drug ineffective [Unknown]
  - Dyspnoea [Unknown]
